FAERS Safety Report 5073045-9 (Version None)
Quarter: 2006Q3

REPORT INFORMATION
  Report Type: 
  Country: None (occurrence: None)
  Receive Date: 20060802
  Receipt Date: 20060720
  Transmission Date: 20061208
  Serious: Yes (Death, Other)
  Sender: FDA-Public Use
  Company Number: 2005128869

PATIENT
  Age: 38 Year
  Sex: Male

DRUGS (8)
  1. NEURONTIN [Suspect]
     Indication: NEURALGIA
     Dosage: 100 MG (100 MG, 1 IN 1 D),
     Dates: start: 20020830
  2. NEURONTIN [Suspect]
     Indication: SLEEP DISORDER
     Dosage: 100 MG (100 MG, 1 IN 1 D),
     Dates: start: 20020830
  3. FENTANYL [Suspect]
     Indication: ILL-DEFINED DISORDER
  4. PERCOCET [Concomitant]
  5. PAXIL [Concomitant]
  6. BUSPAR [Concomitant]
  7. GABITRIL [Concomitant]
  8. BEXTRA [Concomitant]

REACTIONS (10)
  - AGGRESSION [None]
  - ARRHYTHMIA [None]
  - COMPLETED SUICIDE [None]
  - DRUG INEFFECTIVE [None]
  - HOMICIDAL IDEATION [None]
  - INCORRECT DOSE ADMINISTERED [None]
  - LOSS OF CONSCIOUSNESS [None]
  - MULTIPLE DRUG OVERDOSE INTENTIONAL [None]
  - RESPIRATORY DEPRESSION [None]
  - RESPIRATORY FAILURE [None]
